FAERS Safety Report 5401328-9 (Version None)
Quarter: 2007Q3

REPORT INFORMATION
  Report Type: 
  Country: None (occurrence: None)
  Receive Date: 20070731
  Receipt Date: 20070725
  Transmission Date: 20080115
  Serious: Yes (Other)
  Sender: FDA-Public Use
  Company Number: MX-GILEAD-2007-0012638

PATIENT
  Sex: Male
  Weight: 62.5 kg

DRUGS (5)
  1. TRUVADA [Suspect]
     Indication: HIV INFECTION
     Route: 048
     Dates: start: 20070614
  2. TRUVADA [Suspect]
     Route: 048
     Dates: start: 20070413, end: 20070514
  3. SAQUINAVIR [Suspect]
     Route: 048
     Dates: start: 20070614
  4. SAQUINAVIR [Suspect]
     Route: 048
     Dates: start: 20070413, end: 20070514
  5. FLUCONAZOLE [Concomitant]

REACTIONS (1)
  - GENERALISED OEDEMA [None]
